FAERS Safety Report 7363010-0 (Version None)
Quarter: 2011Q1

REPORT INFORMATION
  Report Type: 
  Country: None (occurrence: None)
  Receive Date: 20110321
  Receipt Date: 20110311
  Transmission Date: 20110831
  Serious: Yes (Other)
  Sender: FDA-Public Use
  Company Number: US-PFIZER INC-2006069818

PATIENT
  Sex: Male

DRUGS (2)
  1. NEURONTIN [Suspect]
     Dosage: 300 MG, 3X/DAY
  2. NEURONTIN [Suspect]
     Dosage: 100 MG, 4X/DAY
     Route: 065

REACTIONS (1)
  - SUICIDE ATTEMPT [None]
